FAERS Safety Report 4699451-X (Version None)
Quarter: 2005Q2

REPORT INFORMATION
  Report Type: 
  Country: None (occurrence: None)
  Receive Date: 20050624
  Receipt Date: 20050601
  Transmission Date: 20051028
  Serious: Yes (Hospitalization)
  Sender: FDA-Public Use
  Company Number: PHRM2005FR01711

PATIENT
  Age: 61 Year
  Sex: Female
  Weight: 67 kg

DRUGS (5)
  1. TRILEPTAL [Suspect]
     Indication: EPILEPSY
     Dosage: 1.2 G PER DAY
     Route: 048
     Dates: start: 20040101, end: 20050420
  2. RADIOTHERAPY [Suspect]
     Indication: MENINGIOMA
     Dates: start: 20040101
  3. KEPPRA [Concomitant]
     Indication: EPILEPSY
     Dosage: 2 G DAILY
     Route: 048
     Dates: start: 20040101
  4. LAROXYL [Concomitant]
     Indication: DEPRESSION
     Dosage: 20 DROPS PER DAY
     Route: 048
     Dates: start: 20040201
  5. LYSANXIA [Concomitant]
     Indication: ANXIETY
     Dosage: 1 DF DAILY
     Route: 048
     Dates: start: 20040201

REACTIONS (17)
  - ANAEMIA [None]
  - BALANCE DISORDER [None]
  - BONE MARROW DEPRESSION [None]
  - DIPLOPIA [None]
  - FALL [None]
  - GAMMA-GLUTAMYLTRANSFERASE INCREASED [None]
  - HYPONATRAEMIA [None]
  - LEUKOPENIA [None]
  - LYMPHOPENIA [None]
  - MONOCYTE COUNT DECREASED [None]
  - NEUTROPENIA [None]
  - PLATELET COUNT DECREASED [None]
  - PROTEIN TOTAL DECREASED [None]
  - PSEUDOMONAS INFECTION [None]
  - RED BLOOD CELL SEDIMENTATION RATE INCREASED [None]
  - URINARY TRACT INFECTION [None]
  - WHITE BLOOD CELLS URINE POSITIVE [None]
